FAERS Safety Report 6176892-5 (Version None)
Quarter: 2009Q2

REPORT INFORMATION
  Report Type: 
  Country: None (occurrence: None)
  Receive Date: 20090501
  Receipt Date: 20090423
  Transmission Date: 20091009
  Serious: Yes (Other)
  Sender: FDA-Public Use
  Company Number: US-AMGEN-QUU344127

PATIENT
  Sex: Female

DRUGS (2)
  1. ENBREL [Suspect]
     Indication: PSORIATIC ARTHROPATHY
     Route: 058
     Dates: start: 20090420
  2. METHOTREXATE [Concomitant]
     Dates: start: 20090201

REACTIONS (6)
  - DYSPNOEA [None]
  - FLUSHING [None]
  - MUSCULAR WEAKNESS [None]
  - PALLOR [None]
  - PYREXIA [None]
  - TACHYCARDIA [None]
